FAERS Safety Report 7441871-4 (Version None)
Quarter: 2011Q2

REPORT INFORMATION
  Report Type: 
  Country: None (occurrence: None)
  Receive Date: 20110428
  Receipt Date: 20110419
  Transmission Date: 20111010
  Serious: Yes (Hospitalization)
  Sender: FDA-Public Use
  Company Number: US-ELI_LILLY_AND_COMPANY-US201104005921

PATIENT
  Sex: Female

DRUGS (3)
  1. CYMBALTA [Suspect]
     Indication: FIBROMYALGIA
     Dosage: 60 MG, QD
  2. CYMBALTA [Suspect]
     Dosage: 30 MG, QD
  3. NUVIGIL [Concomitant]

REACTIONS (5)
  - AGITATION [None]
  - DELIRIUM [None]
  - HYPERHIDROSIS [None]
  - INSOMNIA [None]
  - DRUG WITHDRAWAL SYNDROME [None]
